FAERS Safety Report 13991648 (Version 2)
Quarter: 2017Q4

REPORT INFORMATION
  Report Type: Spontaneous
  Country: US (occurrence: US)
  Receive Date: 20170920
  Receipt Date: 20171123
  Transmission Date: 20180321
  Serious: No
  Sender: FDA-Public Use
  Company Number: US-JNJFOC-20170804051

PATIENT
  Sex: Male

DRUGS (1)
  1. RISPERDAL [Suspect]
     Active Substance: RISPERIDONE
     Indication: AGGRESSION
     Dosage: 0.25 MG IN THE MORNING AND 0.50 MG IN THE EVENING
     Route: 048

REACTIONS (3)
  - Packaging design issue [Unknown]
  - Complication associated with device [Unknown]
  - Incorrect dose administered [Unknown]
